FAERS Safety Report 24789315 (Version 1)
Quarter: 2024Q4

REPORT INFORMATION
  Report Type: Spontaneous
  Country: US (occurrence: US)
  Receive Date: 20241230
  Receipt Date: 20241230
  Transmission Date: 20250114
  Serious: Yes (Death, Other)
  Sender: BAUSCH AND LOMB
  Company Number: US-BAUSCH-BL-2024-018606

PATIENT
  Age: 54 Year
  Sex: Male

DRUGS (6)
  1. CHLORDIAZEPOXIDE [Suspect]
     Active Substance: CHLORDIAZEPOXIDE
     Indication: Product used for unknown indication
     Dosage: INGESTION
     Route: 048
  2. ALCOHOL [Suspect]
     Active Substance: ALCOHOL
     Indication: Product used for unknown indication
     Dosage: INGESTION; BEVERAGE
     Route: 048
  3. ALCOHOL [Suspect]
     Active Substance: ALCOHOL
     Dosage: INHALATION; BEVERAGE
     Route: 045
  4. NITRIC OXIDE [Suspect]
     Active Substance: NITRIC OXIDE
     Indication: Product used for unknown indication
     Dosage: INGESTION
     Route: 048
  5. NITRIC OXIDE [Suspect]
     Active Substance: NITRIC OXIDE
     Dosage: INHALATION
     Route: 045
  6. CHLORDIAZEPOXIDE [Suspect]
     Active Substance: CHLORDIAZEPOXIDE
     Indication: Product used for unknown indication
     Dosage: INHALATION
     Route: 045

REACTIONS (3)
  - Cardiac arrest [Unknown]
  - Respiratory arrest [Unknown]
  - Accidental exposure to product [Fatal]
